FAERS Safety Report 4784871-5 (Version None)
Quarter: 2005Q3

REPORT INFORMATION
  Report Type: 
  Country: None (occurrence: None)
  Receive Date: 20050929
  Receipt Date: 20050929
  Transmission Date: 20060218
  Serious: Yes (Life-Threatening, Hospitalization, Disabling)
  Sender: FDA-Public Use
  Company Number: None

PATIENT
  Age: 43 Year
  Sex: Female
  Weight: 97.5234 kg

DRUGS (1)
  1. KINERET 100 MG [Suspect]
     Dosage: 100 MG SUBQ QD
     Route: 058
     Dates: start: 20020314, end: 20020730

REACTIONS (2)
  - PANNICULITIS [None]
  - PERIPHERAL T-CELL LYMPHOMA UNSPECIFIED [None]
